FAERS Safety Report 8120829-6 (Version None)
Quarter: 2012Q1

REPORT INFORMATION
  Report Type: 
  Country: None (occurrence: None)
  Receive Date: 20120208
  Receipt Date: 20120130
  Transmission Date: 20120608
  Serious: Yes (Hospitalization)
  Sender: FDA-Public Use
  Company Number: PT-BRISTOL-MYERS SQUIBB COMPANY-16383812

PATIENT
  Age: 74 Year
  Sex: Female

DRUGS (4)
  1. INDAPAMIDE [Suspect]
     Indication: HYPERTENSION
  2. METFORMIN HCL [Suspect]
  3. FLUVASTATIN [Suspect]
  4. PERINDOPRIL [Suspect]

REACTIONS (2)
  - HYPONATRAEMIA [None]
  - STRESS CARDIOMYOPATHY [None]
